FAERS Safety Report 4474364-7 (Version None)
Quarter: 2004Q4

REPORT INFORMATION
  Report Type: 
  Country: None (occurrence: None)
  Receive Date: 20041014
  Receipt Date: 20041004
  Transmission Date: 20050328
  Serious: Yes (Life-Threatening, Hospitalization, Disabling)
  Sender: FDA-Public Use
  Company Number: US-MERCK-0410USA00373

PATIENT
  Age: 64 Year
  Sex: Female

DRUGS (2)
  1. MORPHINE [Concomitant]
     Route: 065
  2. VIOXX [Suspect]
     Indication: PAIN MANAGEMENT
     Route: 048
     Dates: end: 19991101

REACTIONS (5)
  - ANKLE FRACTURE [None]
  - ASTHENIA [None]
  - BALANCE DISORDER [None]
  - CARDIO-RESPIRATORY ARREST [None]
  - MYOCARDIAL INFARCTION [None]
